FAERS Safety Report 11491965 (Version 1)
Quarter: 2015Q3

REPORT INFORMATION
  Report Type: Spontaneous
  Country: US (occurrence: None)
  Receive Date: 20150910
  Receipt Date: 20150910
  Transmission Date: 20151125
  Serious: Yes (Other)
  Sender: FDA-Public Use
  Company Number: ADR-2015-01637

PATIENT
  Age: 65 Year
  Sex: Male

DRUGS (1)
  1. COMPOUNDED BACLOFEN INTRATHECAL 2000 MCG/ML [Suspect]
     Active Substance: BACLOFEN
     Dosage: 300 MG/DAY

REACTIONS (2)
  - Device connection issue [None]
  - Medical device site discharge [None]
